FAERS Safety Report 8857585 (Version 1)
Quarter: 2012Q4

REPORT INFORMATION
  Report Type: 
  Country: US (occurrence: US)
  Receive Date: 20121024
  Receipt Date: 20121024
  Transmission Date: 20130627
  Serious: Yes (Other)
  Sender: FDA-Public Use
  Company Number: US-WATSON-2012-18162

PATIENT
  Age: 71 Year
  Sex: Female
  Weight: 72 kg

DRUGS (7)
  1. OXYTROL [Suspect]
     Indication: URINARY INCONTINENCE
     Dosage: 1 patch 2 times weekly
     Route: 062
     Dates: start: 20120727, end: 20121003
  2. TEGRETOL [Concomitant]
     Indication: CONVULSION
     Dosage: UNK
     Route: 048
  3. DILANTIN                           /00017401/ [Concomitant]
     Indication: CONVULSION
     Dosage: UNK
     Route: 048
  4. FOSAMAX [Concomitant]
     Indication: OSTEOPOROSIS
     Dosage: UNK
     Route: 048
  5. ADVAIR [Concomitant]
     Indication: CHRONIC OBSTRUCTIVE PULMONARY DISEASE
     Dosage: UNK
     Route: 048
  6. TRAZODONE [Concomitant]
     Indication: PRODUCT USED FOR UNKNOWN INDICATION
     Dosage: UNK
     Route: 048
  7. BUSPAR [Concomitant]
     Indication: PRODUCT USED FOR UNKNOWN INDICATION
     Dosage: UNK
     Route: 048

REACTIONS (1)
  - Convulsion [Not Recovered/Not Resolved]
